FAERS Safety Report 12309525 (Version 1)
Quarter: 2016Q2

REPORT INFORMATION
  Report Type: Spontaneous
  Country: US (occurrence: None)
  Receive Date: 20160426
  Receipt Date: 20160426
  Transmission Date: 20160815
  Serious: Yes (Life-Threatening, Disabling)
  Sender: FDA-Public Use
  Company Number: None

PATIENT
  Age: 57 Year
  Sex: Female
  Weight: 83.92 kg

DRUGS (1)
  1. LEVOFLOXACIN, 500 MG [Suspect]
     Active Substance: LEVOFLOXACIN
     Indication: EAR PAIN
     Route: 048
     Dates: start: 20160223, end: 20160301

REACTIONS (3)
  - Abasia [None]
  - Ventricular arrhythmia [None]
  - Pain in extremity [None]
